FAERS Safety Report 21928404 (Version 3)
Quarter: 2023Q1

REPORT INFORMATION
  Report Type: Report from Study
  Country: CA (occurrence: CA)
  Receive Date: 20230130
  Receipt Date: 20230322
  Transmission Date: 20230418
  Serious: Yes (Hospitalization, Other)
  Sender: FDA-Public Use
  Company Number: CA-JNJFOC-20230118144

PATIENT
  Age: 15 Year
  Sex: Female
  Weight: 98 kg

DRUGS (2)
  1. REMICADE [Suspect]
     Active Substance: INFLIXIMAB
     Indication: Crohn^s disease
     Dosage: ON 23-JAN-2023, THE PATIENT RECEIVED 113TH INFLIXIMAB INFUSION AT DOSE OF 600 MG AND PARTIAL HARVEY-
     Route: 041
     Dates: start: 20100226
  2. REMICADE [Suspect]
     Active Substance: INFLIXIMAB
     Route: 041

REACTIONS (6)
  - Pilonidal disease [Recovering/Resolving]
  - Dermal cyst [Unknown]
  - Crohn^s disease [Recovering/Resolving]
  - COVID-19 [Recovered/Resolved]
  - Treatment noncompliance [Unknown]
  - Off label use [Unknown]

NARRATIVE: CASE EVENT DATE: 20100226
